FAERS Safety Report 8535016-7 (Version None)
Quarter: 2012Q3

REPORT INFORMATION
  Report Type: 
  Country: None (occurrence: None)
  Receive Date: 20120724
  Receipt Date: 20120717
  Transmission Date: 20120928
  Serious: Yes (Other)
  Sender: FDA-Public Use
  Company Number: US-PFIZER INC-2012048045

PATIENT
  Sex: Male

DRUGS (3)
  1. DETROL LA [Suspect]
     Indication: HYPERTONIC BLADDER
     Dosage: UNK
  2. DETROL LA [Suspect]
     Dosage: UNK
  3. XALATAN [Suspect]
     Dosage: UNK

REACTIONS (2)
  - HYPOACUSIS [None]
  - GOUTY ARTHRITIS [None]
